FAERS Safety Report 8344322-0 (Version None)
Quarter: 2012Q2

REPORT INFORMATION
  Report Type: 
  Country: None (occurrence: None)
  Receive Date: 20120508
  Receipt Date: 20120503
  Transmission Date: 20120825
  Serious: Yes (Other)
  Sender: FDA-Public Use
  Company Number: ZA-PFIZER INC-2012109416

PATIENT
  Age: 59 Year
  Sex: Male
  Weight: 80 kg

DRUGS (3)
  1. CIALIS [Concomitant]
     Dosage: 20 MG, UNK
  2. DICLOFENAC [Concomitant]
     Indication: JOINT INJURY
  3. VARENICLINE TARTRATE [Suspect]
     Dosage: UNK
     Route: 048
     Dates: start: 20120425

REACTIONS (4)
  - RECTAL HAEMORRHAGE [None]
  - NAUSEA [None]
  - ANAL HAEMORRHAGE [None]
  - FLATULENCE [None]
